FAERS Safety Report 18527698 (Version 1)
Quarter: 2020Q4

REPORT INFORMATION
  Report Type: Spontaneous
  Country: US (occurrence: US)
  Receive Date: 20201120
  Receipt Date: 20201120
  Transmission Date: 20210114
  Serious: No
  Sender: FDA-Public Use
  Company Number: US-TEVA-2020-US-1850482

PATIENT
  Age: 58 Year
  Sex: Female
  Weight: 74.84 kg

DRUGS (7)
  1. CITALOPRAM [Suspect]
     Active Substance: CITALOPRAM HYDROBROMIDE
     Indication: ANXIETY
     Dosage: 10 MILLIGRAM DAILY;
  2. PREDNISOLONE. [Suspect]
     Active Substance: PREDNISOLONE
     Indication: BLEPHARITIS
  3. PREDNISOLONE. [Suspect]
     Active Substance: PREDNISOLONE
     Indication: MEIBOMIAN GLAND DYSFUNCTION
     Dosage: DOSE: 1 DROP IN EACH EYE TWICE DAILY
     Route: 065
     Dates: start: 20200930
  4. FAMOTIDINE. [Suspect]
     Active Substance: FAMOTIDINE
     Indication: GASTROOESOPHAGEAL REFLUX DISEASE
     Dosage: 40 MILLIGRAM DAILY;
     Route: 065
  5. DOXYCYCLINE. [Suspect]
     Active Substance: DOXYCYCLINE
     Indication: BLEPHARITIS
     Dosage: 100 MILLIGRAM DAILY;
     Route: 065
     Dates: start: 20200930
  6. BUPROPION XL [Suspect]
     Active Substance: BUPROPION
     Indication: DEPRESSION
     Dosage: 300 MILLIGRAM DAILY;
     Route: 065
  7. DOXYCYCLINE. [Suspect]
     Active Substance: DOXYCYCLINE
     Indication: MEIBOMIAN GLAND DYSFUNCTION

REACTIONS (2)
  - Halo vision [Recovering/Resolving]
  - Vision blurred [Recovering/Resolving]

NARRATIVE: CASE EVENT DATE: 20201007
